FAERS Safety Report 8358137-0 (Version None)
Quarter: 2012Q2

REPORT INFORMATION
  Report Type: 
  Country: None (occurrence: None)
  Receive Date: 20120514
  Receipt Date: 20120504
  Transmission Date: 20120825
  Serious: Yes (Hospitalization)
  Sender: FDA-Public Use
  Company Number: US-GLAXOSMITHKLINE-A0864604A

PATIENT
  Age: 74 Year
  Sex: Male

DRUGS (6)
  1. GLYBURIDE [Concomitant]
  2. DIOVAN [Concomitant]
  3. AVANDIA [Suspect]
     Indication: DIABETES MELLITUS
     Dosage: 4MG PER DAY
     Route: 048
     Dates: start: 20030101, end: 20100214
  4. AVODART [Concomitant]
  5. ARICEPT [Concomitant]
  6. PRILOSEC [Concomitant]

REACTIONS (1)
  - ISCHAEMIC STROKE [None]
